FAERS Safety Report 17199946 (Version 2)
Quarter: 2020Q1

REPORT INFORMATION
  Report Type: Report from Study
  Country: AR (occurrence: AR)
  Receive Date: 20191226
  Receipt Date: 20200205
  Transmission Date: 20200409
  Serious: Yes (Hospitalization, Other)
  Sender: FDA-Public Use
  Company Number: AR-AMGEN-ARGSL2019163769

PATIENT
  Age: 55 Year
  Sex: Female

DRUGS (1)
  1. VECTIBIX [Suspect]
     Active Substance: PANITUMUMAB
     Indication: COLORECTAL CANCER METASTATIC
     Dosage: UNK UNK, Q2WK (EVERY 14 DAYS)
     Route: 065

REACTIONS (9)
  - Catheter placement [Unknown]
  - Disease progression [Unknown]
  - Weight decreased [Unknown]
  - Neoplasm [Unknown]
  - Unevaluable event [Not Recovered/Not Resolved]
  - Device occlusion [Unknown]
  - Adverse reaction [Unknown]
  - Post procedural bile leak [Unknown]
  - Pyrexia [Not Recovered/Not Resolved]

NARRATIVE: CASE EVENT DATE: 2019
